FAERS Safety Report 11832960 (Version 1)
Quarter: 2015Q4

REPORT INFORMATION
  Report Type: Spontaneous
  Country: US (occurrence: US)
  Receive Date: 20151214
  Receipt Date: 20151214
  Transmission Date: 20160305
  Serious: Yes (Life-Threatening, Other)
  Sender: FDA-Public Use
  Company Number: US-APOTEX-2015AP015187

PATIENT

DRUGS (4)
  1. CLOPIDOGREL [Suspect]
     Active Substance: CLOPIDOGREL BISULFATE
     Dosage: 75 MG/DAY
     Route: 065
  2. ASPIRIN                            /00002701/ [Suspect]
     Active Substance: ASPIRIN
     Indication: FEMORAL ARTERY OCCLUSION
     Dosage: 81 MG/DAY
     Route: 065
  3. WARFARIN [Suspect]
     Active Substance: WARFARIN
     Indication: FEMORAL ARTERY OCCLUSION
     Route: 065
  4. CLOPIDOGREL [Suspect]
     Active Substance: CLOPIDOGREL BISULFATE
     Indication: FEMORAL ARTERY OCCLUSION
     Dosage: 300 MG, LOADING DOSE
     Route: 065

REACTIONS (1)
  - Lower gastrointestinal haemorrhage [Unknown]
